FAERS Safety Report 22600499 (Version 1)
Quarter: 2023Q2

REPORT INFORMATION
  Report Type: Spontaneous
  Country: JP (occurrence: None)
  Receive Date: 20230614
  Receipt Date: 20230614
  Transmission Date: 20230721
  Serious: Yes (Other)
  Sender: FDA-Public Use
  Company Number: JP-Merck Healthcare KGaA-9408642

PATIENT
  Age: 42 Year
  Sex: Female

DRUGS (2)
  1. METGLUCO [Suspect]
     Active Substance: METFORMIN HYDROCHLORIDE
     Indication: Product used for unknown indication
     Route: 048
  2. SEXOVID [Concomitant]
     Indication: Product used for unknown indication

REACTIONS (4)
  - Abortion [Recovered/Resolved]
  - Placental polyp [Unknown]
  - Essential hypertension [Recovered/Resolved]
  - Maternal exposure during pregnancy [Recovered/Resolved]
